FAERS Safety Report 22683179 (Version 2)
Quarter: 2024Q1

REPORT INFORMATION
  Report Type: Spontaneous
  Country: GR (occurrence: GR)
  Receive Date: 20230707
  Receipt Date: 20240318
  Transmission Date: 20240410
  Serious: Yes (Death, Hospitalization, Other)
  Sender: FDA-Public Use
  Company Number: None

PATIENT
  Age: 39 Year
  Sex: Male
  Weight: 85 kg

DRUGS (6)
  1. MEDROL [Suspect]
     Active Substance: METHYLPREDNISOLONE
     Indication: Haemolytic anaemia
     Dosage: 3 MG
     Route: 048
     Dates: start: 20110601, end: 20230605
  2. NEORAL [Suspect]
     Active Substance: CYCLOSPORINE
     Indication: Haemolytic anaemia
     Dosage: 200 MG, DAILY
     Route: 048
     Dates: start: 20220531, end: 20230605
  3. NEORAL [Suspect]
     Active Substance: CYCLOSPORINE
     Indication: Psoriatic arthropathy
  4. COSENTYX [Suspect]
     Active Substance: SECUKINUMAB
     Indication: Psoriatic arthropathy
     Dosage: 300 MG/ML/MONTH
     Route: 058
     Dates: start: 20230215, end: 20230605
  5. ALLOPURINOL [Concomitant]
     Active Substance: ALLOPURINOL
     Dosage: UNK
  6. SERTRALINE HYDROCHLORIDE [Concomitant]
     Active Substance: SERTRALINE HYDROCHLORIDE
     Dosage: UNK

REACTIONS (2)
  - Septic shock [Fatal]
  - Streptococcal infection [Fatal]

NARRATIVE: CASE EVENT DATE: 20230601
